FAERS Safety Report 5037379-6 (Version None)
Quarter: 2006Q2

REPORT INFORMATION
  Report Type: 
  Country: None (occurrence: None)
  Receive Date: 20060605
  Receipt Date: 20060414
  Transmission Date: 20061013
  Serious: Yes (Other)
  Sender: FDA-Public Use
  Company Number: 26767

PATIENT
  Age: 46 Year
  Sex: Male
  Weight: 113.3993 kg

DRUGS (4)
  1. BUPRENORPHINE HCL [Suspect]
     Indication: BACK PAIN
     Dosage: 1 ML SQ UP TO 6X A DAY AS NEED
  2. VISTARIL [Concomitant]
  3. KLONIPIN [Concomitant]
  4. LEXAPRO [Concomitant]

REACTIONS (1)
  - NAUSEA [None]
